FAERS Safety Report 25361000 (Version 1)
Quarter: 2025Q2

REPORT INFORMATION
  Report Type: Spontaneous
  Country: US (occurrence: US)
  Receive Date: 20250527
  Receipt Date: 20250527
  Transmission Date: 20250716
  Serious: No
  Sender: GLAXOSMITHKLINE
  Company Number: US-GSK-US2025059265

PATIENT
  Age: 47 Year
  Sex: Male

DRUGS (4)
  1. NUCALA [Suspect]
     Active Substance: MEPOLIZUMAB
     Indication: Eosinophilic granulomatosis with polyangiitis
     Dosage: 3 DF, Q4W
     Dates: start: 20250503
  2. LEVOTHYROXINE [Concomitant]
     Active Substance: LEVOTHYROXINE
     Indication: Product used for unknown indication
  3. PREDNISONE [Concomitant]
     Active Substance: PREDNISONE
     Indication: Product used for unknown indication
  4. TRAZODONE [Concomitant]
     Active Substance: TRAZODONE HYDROCHLORIDE
     Indication: Product used for unknown indication

REACTIONS (7)
  - Infrequent bowel movements [Unknown]
  - Depression [Unknown]
  - Anxiety [Unknown]
  - Alopecia [Unknown]
  - Insomnia [Unknown]
  - Muscle atrophy [Unknown]
  - Dental operation [Unknown]

NARRATIVE: CASE EVENT DATE: 20250501
